FAERS Safety Report 9929042 (Version 1)
Quarter: 2014Q1

REPORT INFORMATION
  Report Type: Spontaneous
  Country: US (occurrence: US)
  Receive Date: 20140227
  Receipt Date: 20140227
  Transmission Date: 20141002
  Serious: Yes (Hospitalization)
  Sender: FDA-Public Use
  Company Number: US-CUBIST PHARMACEUTICAL, INC.-2014CBST000289

PATIENT
  Sex: 0

DRUGS (11)
  1. CUBICIN [Suspect]
     Indication: ARTHRITIS INFECTIVE
     Dosage: 5.9 MG/KG IN 10 ML, QD VIA INFUSION
     Route: 042
  2. CUBICIN [Suspect]
     Indication: OFF LABEL USE
     Dosage: 500 MG IN 10 ML, QD VIA INFUSION
     Route: 042
  3. PROTONIX [Concomitant]
     Indication: PRODUCT USED FOR UNKNOWN INDICATION
     Dosage: UNK, UNK UNK
     Route: 065
  4. NYSTATIN [Concomitant]
     Indication: PRODUCT USED FOR UNKNOWN INDICATION
     Dosage: UNK UNK, UNK
     Route: 065
  5. TPN                                /00897001/ [Concomitant]
     Indication: PRODUCT USED FOR UNKNOWN INDICATION
     Dosage: UNK, UNK UNK
     Route: 065
  6. ALBUTEROL                          /00139501/ [Concomitant]
     Indication: PRODUCT USED FOR UNKNOWN INDICATION
     Dosage: UNK, UNK UNK
     Route: 065
  7. INSULIN [Concomitant]
     Indication: PRODUCT USED FOR UNKNOWN INDICATION
     Dosage: UNK, UNK UNK
     Route: 065
  8. DILAUDID [Concomitant]
     Indication: PRODUCT USED FOR UNKNOWN INDICATION
     Dosage: UNK, UNK UNK
     Route: 065
  9. MEROPENEM [Concomitant]
     Indication: PRODUCT USED FOR UNKNOWN INDICATION
     Dosage: UNK, UNK UNK
     Route: 065
  10. METOPROLOL [Concomitant]
     Indication: PRODUCT USED FOR UNKNOWN INDICATION
     Dosage: UNK, UNK UNK
     Route: 065
  11. MICONAZOLE [Concomitant]
     Indication: PRODUCT USED FOR UNKNOWN INDICATION
     Dosage: UNK, UNK
     Route: 061

REACTIONS (2)
  - Adverse event [Unknown]
  - Infusion site pain [Not Recovered/Not Resolved]
